FAERS Safety Report 4959119-9 (Version None)
Quarter: 2006Q1

REPORT INFORMATION
  Report Type: 
  Country: None (occurrence: None)
  Receive Date: 20060330
  Receipt Date: 20060330
  Transmission Date: 20060701
  Serious: Yes (Other)
  Sender: FDA-Public Use
  Company Number: None

PATIENT
  Age: 69 Year
  Sex: Female
  Weight: 79.5 kg

DRUGS (7)
  1. PANGLOBULIN [Suspect]
  2. BENADRYL [Concomitant]
  3. IBUPROFEN [Concomitant]
  4. AVELOX [Concomitant]
  5. ZYRTEC [Concomitant]
  6. HYDROXYZINE [Concomitant]
  7. THIOMERSOL [Concomitant]

REACTIONS (23)
  - BACK PAIN [None]
  - BURNING SENSATION [None]
  - CHEST DISCOMFORT [None]
  - CHILLS [None]
  - DIZZINESS [None]
  - DYSPHONIA [None]
  - DYSPNOEA [None]
  - EAR PAIN [None]
  - FATIGUE [None]
  - FEELING HOT [None]
  - FLUSHING [None]
  - HEADACHE [None]
  - HYPERHIDROSIS [None]
  - MALAISE [None]
  - MUSCLE SPASMS [None]
  - MYALGIA [None]
  - NAUSEA [None]
  - NECK PAIN [None]
  - PLEURISY [None]
  - RASH [None]
  - RASH ERYTHEMATOUS [None]
  - RENAL PAIN [None]
  - URINE OUTPUT DECREASED [None]
